FAERS Safety Report 10459179 (Version 1)
Quarter: 2014Q3

REPORT INFORMATION
  Report Type: Spontaneous
  Country: US (occurrence: None)
  Receive Date: 20140916
  Receipt Date: 20140916
  Transmission Date: 20150326
  Serious: Yes (Hospitalization)
  Sender: FDA-Public Use
  Company Number: None

PATIENT
  Age: 67 Year
  Sex: Male
  Weight: 90.72 kg

DRUGS (3)
  1. 5-FU [Suspect]
     Active Substance: FLUOROURACIL
  2. HYDREA [Concomitant]
     Active Substance: HYDROXYUREA
  3. TAXOL [Suspect]
     Active Substance: PACLITAXEL

REACTIONS (1)
  - Pneumonia staphylococcal [None]

NARRATIVE: CASE EVENT DATE: 20140904
